FAERS Safety Report 25789320 (Version 1)
Quarter: 2025Q3

REPORT INFORMATION
  Report Type: Spontaneous
  Country: AU (occurrence: AU)
  Receive Date: 20250911
  Receipt Date: 20250911
  Transmission Date: 20251020
  Serious: Yes (Hospitalization)
  Sender: SAMSUNG BIOEPIS
  Company Number: AU-SAMSUNG BIOEPIS-SB-2025-30227

PATIENT
  Age: 38 Year
  Sex: Male

DRUGS (4)
  1. INFLIXIMAB [Suspect]
     Active Substance: INFLIXIMAB
     Indication: Crohn^s disease
  2. INFLIXIMAB [Suspect]
     Active Substance: INFLIXIMAB
  3. INFLIXIMAB [Suspect]
     Active Substance: INFLIXIMAB
  4. INFLIXIMAB [Suspect]
     Active Substance: INFLIXIMAB
     Dosage: MAINTENANCE AND ESCALATED DOSE;

REACTIONS (1)
  - Crohn^s disease [Unknown]
